FAERS Safety Report 19577510 (Version 1)
Quarter: 2021Q3

REPORT INFORMATION
  Report Type: Spontaneous
  Country: US (occurrence: US)
  Receive Date: 20210719
  Receipt Date: 20210719
  Transmission Date: 20211014
  Serious: Yes (Other)
  Sender: FDA-Public Use
  Company Number: US-GLAXOSMITHKLINE-US2021GSK150136

PATIENT
  Sex: Male

DRUGS (6)
  1. RANITIDINE. [Suspect]
     Active Substance: RANITIDINE
     Indication: PEPTIC ULCER
     Dosage: 150 MG, BID
     Route: 065
     Dates: start: 199001, end: 201801
  2. RANITIDINE. [Suspect]
     Active Substance: RANITIDINE
     Indication: PEPTIC ULCER
     Dosage: 75 MG, BID
     Route: 065
     Dates: start: 199001, end: 201801
  3. RANITIDINE. [Suspect]
     Active Substance: RANITIDINE
     Dosage: UNK UNK, BID
     Route: 065
     Dates: start: 199001, end: 201801
  4. RANITIDINE. [Suspect]
     Active Substance: RANITIDINE
     Dosage: 150 MG, BID
     Route: 065
     Dates: start: 199001, end: 201801
  5. RANITIDINE. [Suspect]
     Active Substance: RANITIDINE
     Dosage: 75 MG, BID
     Route: 065
     Dates: start: 199001, end: 201801
  6. RANITIDINE. [Suspect]
     Active Substance: RANITIDINE
     Dosage: UNK, BID
     Route: 065
     Dates: start: 199001, end: 201801

REACTIONS (1)
  - Colorectal cancer [Unknown]
